FAERS Safety Report 9263888 (Version 1)
Quarter: 2013Q2

REPORT INFORMATION
  Report Type: Spontaneous
  Country: US (occurrence: US)
  Receive Date: 20130430
  Receipt Date: 20130430
  Transmission Date: 20140414
  Serious: Yes (Other)
  Sender: FDA-Public Use
  Company Number: US-BRISTOL-MYERS SQUIBB COMPANY-18807917

PATIENT
  Age: 81 Year
  Sex: Female
  Weight: 57.14 kg

DRUGS (1)
  1. ORENCIA FOR INJ [Suspect]
     Indication: RHEUMATOID ARTHRITIS
     Dosage: LAST INFUSION WAS ON 17APR2013
     Route: 042

REACTIONS (6)
  - Arrhythmia [Unknown]
  - Dehydration [Unknown]
  - Syncope [Unknown]
  - Blood pressure increased [Unknown]
  - Contusion [Unknown]
  - Muscular weakness [Unknown]
